FAERS Safety Report 7854647-0 (Version None)
Quarter: 2011Q4

REPORT INFORMATION
  Report Type: 
  Country: None (occurrence: None)
  Receive Date: 20111026
  Receipt Date: 20111020
  Transmission Date: 20120403
  Serious: Yes (Hospitalization)
  Sender: FDA-Public Use
  Company Number: US-BAYER-2011-102395

PATIENT
  Age: 91 Year
  Sex: Male

DRUGS (1)
  1. AVELOX [Suspect]
     Indication: PNEUMONIA
     Dosage: UNK
     Dates: start: 20110929

REACTIONS (3)
  - CONFUSIONAL STATE [None]
  - MUSCULAR WEAKNESS [None]
  - DIPLEGIA [None]
